FAERS Safety Report 8226788-X (Version None)
Quarter: 2012Q1

REPORT INFORMATION
  Report Type: 
  Country: None (occurrence: None)
  Receive Date: 20120322
  Receipt Date: 20120312
  Transmission Date: 20120608
  Serious: Yes (Hospitalization, Other)
  Sender: FDA-Public Use
  Company Number: US-BAYER-2011-093365

PATIENT
  Age: 28 Year
  Sex: Female
  Weight: 136 kg

DRUGS (10)
  1. LORTAB [Concomitant]
     Indication: BACK PAIN
     Dosage: 5/500
     Route: 048
  2. YAZ [Suspect]
     Dosage: UNK
     Dates: start: 20080215, end: 20091101
  3. CYMBALTA [Concomitant]
     Indication: DEPRESSION
     Dosage: 30 MG, QD
     Route: 048
     Dates: start: 20091112
  4. AMOXICILLIN [Concomitant]
     Indication: RESPIRATORY TRACT INFECTION
     Route: 048
  5. IBUPROFEN TABLETS [Concomitant]
     Indication: PAIN
     Dosage: 800 MG, BID
     Route: 048
  6. PRILOSEC [Concomitant]
  7. LORTAB [Concomitant]
     Dosage: 10/325
     Route: 048
  8. FLEXERIL [Concomitant]
     Indication: MUSCLE SPASMS
     Dosage: 10 MG, TID
     Route: 048
  9. PREVACID [Concomitant]
     Indication: DYSPEPSIA
     Dosage: 30 MG, UNK
     Route: 048
  10. ALBUTEROL [Concomitant]
     Indication: ASTHMA
     Route: 055

REACTIONS (4)
  - CHOLECYSTITIS ACUTE [None]
  - GALLBLADDER PAIN [None]
  - GALLBLADDER DISORDER [None]
  - INJURY [None]
